FAERS Safety Report 9955705 (Version 1)
Quarter: 2014Q1

REPORT INFORMATION
  Report Type: Report from Study
  Country: US (occurrence: US)
  Receive Date: 20140304
  Receipt Date: 20140304
  Transmission Date: 20141002
  Serious: No
  Sender: FDA-Public Use
  Company Number: US-ABBVIE-13P-163-1090392-00

PATIENT
  Age: 66 Year
  Sex: Female
  Weight: 108.96 kg

DRUGS (16)
  1. HUMIRA [Suspect]
     Indication: PSORIATIC ARTHROPATHY
     Dates: start: 201108
  2. AZATHIOPRINE [Concomitant]
     Indication: PSORIATIC ARTHROPATHY
  3. FOLIC ACID [Concomitant]
     Indication: PRODUCT USED FOR UNKNOWN INDICATION
  4. LOSARTAN [Concomitant]
     Indication: HYPERTENSION
  5. AMLODIPINE [Concomitant]
     Indication: HYPERTENSION
  6. AMLODIPINE [Concomitant]
     Indication: SYNCOPE
  7. METOPROLOL TARTRATE [Concomitant]
     Indication: HYPERTENSION
  8. METOPROLOL TARTRATE [Concomitant]
     Indication: SYNCOPE
  9. DEPAKOTE [Concomitant]
     Indication: AFFECTIVE DISORDER
  10. DEPAKOTE [Concomitant]
     Indication: EPILEPSY
  11. BUPROPION [Concomitant]
     Indication: DEPRESSION
  12. FLUOXETINE [Concomitant]
     Indication: DEPRESSION
  13. SYNTHROID [Concomitant]
     Indication: HYPOTHYROIDISM
  14. LIOTHYRONINE [Concomitant]
     Indication: HYPOTHYROIDISM
  15. ADVAIR [Concomitant]
     Indication: CHRONIC OBSTRUCTIVE PULMONARY DISEASE
  16. MELATONIN [Concomitant]
     Indication: SLEEP DISORDER THERAPY

REACTIONS (1)
  - Injection site pain [Not Recovered/Not Resolved]
